FAERS Safety Report 10373049 (Version 2)
Quarter: 2014Q3

REPORT INFORMATION
  Report Type: Spontaneous
  Country: US (occurrence: US)
  Receive Date: 20140808
  Receipt Date: 20140808
  Transmission Date: 20150326
  Serious: Yes (Hospitalization)
  Sender: FDA-Public Use
  Company Number: US-BRISTOL-MYERS SQUIBB COMPANY-19951672

PATIENT
  Age: 74 Year
  Sex: Male

DRUGS (8)
  1. VITAMIN D [Concomitant]
     Active Substance: CHOLECALCIFEROL
  2. TERAZOSIN [Concomitant]
     Active Substance: TERAZOSIN\TERAZOSIN HYDROCHLORIDE
  3. ULORIC [Concomitant]
     Active Substance: FEBUXOSTAT
  4. SPRYCEL [Suspect]
     Active Substance: DASATINIB
     Indication: CHRONIC MYELOID LEUKAEMIA
     Route: 048
     Dates: start: 20131004, end: 20131020
  5. LOSARTAN [Concomitant]
     Active Substance: LOSARTAN
  6. ASPIRIN. [Concomitant]
     Active Substance: ASPIRIN
  7. FISH OIL [Concomitant]
     Active Substance: FISH OIL
  8. LEVOXYL [Concomitant]
     Active Substance: LEVOTHYROXINE SODIUM

REACTIONS (2)
  - Chest discomfort [Recovering/Resolving]
  - Stress cardiomyopathy [Recovering/Resolving]

NARRATIVE: CASE EVENT DATE: 20131011
